FAERS Safety Report 4816378-0 (Version None)
Quarter: 2005Q4

REPORT INFORMATION
  Report Type: 
  Country: None (occurrence: None)
  Receive Date: 20051028
  Receipt Date: 20051017
  Transmission Date: 20060501
  Serious: Yes (Hospitalization)
  Sender: FDA-Public Use
  Company Number: 2005144081

PATIENT
  Age: 5 Year
  Sex: Female
  Weight: 14.3 kg

DRUGS (2)
  1. GENOTROPIN [Suspect]
     Indication: BODY HEIGHT BELOW NORMAL
     Dosage: 2.3 MG/WEEK (7 TIMES A WEEK), SUBCUTANEOUS
     Route: 058
     Dates: start: 20041026
  2. GENOTROPIN [Suspect]
     Indication: HYPOPITUITARISM
     Dosage: 2.3 MG/WEEK (7 TIMES A WEEK), SUBCUTANEOUS
     Route: 058
     Dates: start: 20041026

REACTIONS (4)
  - DEPRESSED LEVEL OF CONSCIOUSNESS [None]
  - FEBRILE CONVULSION [None]
  - PYREXIA [None]
  - VOMITING [None]
